FAERS Safety Report 23482919 (Version 1)
Quarter: 2024Q1

REPORT INFORMATION
  Report Type: Spontaneous
  Country: RU (occurrence: RU)
  Receive Date: 20240205
  Receipt Date: 20240205
  Transmission Date: 20240410
  Serious: Yes (Other)
  Sender: FDA-Public Use
  Company Number: RU-ABBVIE-5624312

PATIENT
  Age: 6 Year
  Sex: Male
  Weight: 22 kg

DRUGS (4)
  1. SEVOFLURANE [Suspect]
     Active Substance: SEVOFLURANE
     Indication: General anaesthesia
     Route: 050
     Dates: start: 20231205, end: 20231205
  2. ATROPINE [Concomitant]
     Active Substance: ATROPINE\ATROPINE SULFATE
     Indication: Premedication
     Dosage: FORM STRENGTH: 1 MILLIGRAM/MILLILITERS
     Dates: start: 20231205, end: 20231205
  3. Levomycetin [Concomitant]
     Indication: Infection prophylaxis
     Dosage: FORM STRENGTH: 0.25 PERCENT
     Dates: start: 20231204, end: 20231213
  4. DEXAMETHASONE [Concomitant]
     Active Substance: DEXAMETHASONE
     Indication: Antiinflammatory therapy
     Dosage: FORM STRENGTH: 0.1 PERCENT
     Dates: start: 20231204, end: 20231213

REACTIONS (5)
  - Surgery [Unknown]
  - Procedural nausea [Recovered/Resolved]
  - Procedural vomiting [Not Recovered/Not Resolved]
  - Post procedural complication [Unknown]
  - Asthenia [Recovered/Resolved]

NARRATIVE: CASE EVENT DATE: 20231205
